FAERS Safety Report 6344711-X (Version None)
Quarter: 2009Q3

REPORT INFORMATION
  Report Type: 
  Country: None (occurrence: None)
  Receive Date: 20090821
  Receipt Date: 20090508
  Transmission Date: 20100115
  Serious: No
  Sender: FDA-Public Use
  Company Number: 8046134

PATIENT
  Sex: Male

DRUGS (1)
  1. CIMZIA [Suspect]

REACTIONS (2)
  - INFECTION [None]
  - NASOPHARYNGITIS [None]
